FAERS Safety Report 7684012-0 (Version None)
Quarter: 2011Q3

REPORT INFORMATION
  Report Type: 
  Country: None (occurrence: None)
  Receive Date: 20110815
  Receipt Date: 20110804
  Transmission Date: 20111222
  Serious: Yes (Other)
  Sender: FDA-Public Use
  Company Number: IT-GENZYME-POMP-1001658

PATIENT
  Sex: Female

DRUGS (1)
  1. MYOZYME [Suspect]
     Indication: GLYCOGEN STORAGE DISEASE TYPE II
     Dosage: 20 MG/KG, Q2W
     Route: 042
     Dates: start: 20081101

REACTIONS (4)
  - RESPIRATORY FAILURE [None]
  - DRUG EFFECT DECREASED [None]
  - PNEUMONIA ASPIRATION [None]
  - MUSCULAR WEAKNESS [None]
